FAERS Safety Report 12315370 (Version 1)
Quarter: 2016Q2

REPORT INFORMATION
  Report Type: Spontaneous
  Country: US (occurrence: US)
  Receive Date: 20160428
  Receipt Date: 20160428
  Transmission Date: 20160815
  Serious: Yes (Other)
  Sender: FDA-Public Use
  Company Number: US-BEH-2016061779

PATIENT
  Sex: Female
  Weight: 78 kg

DRUGS (20)
  1. EPIPEN [Concomitant]
     Active Substance: EPINEPHRINE
  2. CEFTIN [Concomitant]
     Active Substance: CEFUROXIME AXETIL
  3. SKELAXIN [Concomitant]
     Active Substance: METAXALONE
  4. HIZENTRA [Suspect]
     Active Substance: HUMAN IMMUNOGLOBULIN G
     Indication: SELECTIVE IGG SUBCLASS DEFICIENCY
     Route: 058
     Dates: start: 20120105
  5. ACETAMINOPHEN. [Concomitant]
     Active Substance: ACETAMINOPHEN
  6. LMX [Concomitant]
     Active Substance: LIDOCAINE
  7. BYSTOLIC [Concomitant]
     Active Substance: NEBIVOLOL HYDROCHLORIDE
  8. RANEXA [Concomitant]
     Active Substance: RANOLAZINE
  9. VISTARIL [Concomitant]
     Active Substance: HYDROXYZINE PAMOATE
  10. IBUPROFEN. [Concomitant]
     Active Substance: IBUPROFEN
  11. DIPHENHYDRAMINE. [Concomitant]
     Active Substance: DIPHENHYDRAMINE
  12. SAVELLA [Concomitant]
     Active Substance: MILNACIPRAN HYDROCHLORIDE
  13. VALIUM [Concomitant]
     Active Substance: DIAZEPAM
  14. VITAMIN D [Concomitant]
     Active Substance: CHOLECALCIFEROL
  15. SINGULAIR [Concomitant]
     Active Substance: MONTELUKAST SODIUM
  16. NEXIUM [Concomitant]
     Active Substance: ESOMEPRAZOLE MAGNESIUM
  17. TORSEMIDE. [Concomitant]
     Active Substance: TORSEMIDE
  18. IPRAT-ALBUT [Concomitant]
  19. PHENERGAN [Concomitant]
     Active Substance: PROMETHAZINE HYDROCHLORIDE
  20. ULTRAM [Concomitant]
     Active Substance: TRAMADOL HYDROCHLORIDE

REACTIONS (1)
  - Diverticulitis [Unknown]
